FAERS Safety Report 7704719-6 (Version None)
Quarter: 2011Q3

REPORT INFORMATION
  Report Type: 
  Country: None (occurrence: None)
  Receive Date: 20110823
  Receipt Date: 20110811
  Transmission Date: 20111222
  Serious: Yes (Hospitalization)
  Sender: FDA-Public Use
  Company Number: PHHY2011IN73075

PATIENT
  Age: 16 Year
  Sex: Female

DRUGS (4)
  1. ISONIAZID [Concomitant]
  2. RIFAMPICIN [Suspect]
     Indication: TUBERCULOSIS
  3. PYRAZINAMIDE [Concomitant]
  4. ETHAMBUTOL HYDROCHLORIDE [Concomitant]

REACTIONS (8)
  - LUNG CONSOLIDATION [None]
  - PRODUCTIVE COUGH [None]
  - DECREASED APPETITE [None]
  - RASH [None]
  - THROMBOCYTOPENIA [None]
  - PYREXIA [None]
  - ACID FAST BACILLI INFECTION [None]
  - PURPURA [None]
